FAERS Safety Report 6958616-4 (Version None)
Quarter: 2010Q3

REPORT INFORMATION
  Report Type: 
  Country: None (occurrence: None)
  Receive Date: 20100827
  Receipt Date: 20100827
  Transmission Date: 20110219
  Serious: No
  Sender: FDA-Public Use
  Company Number: None

PATIENT
  Sex: Female
  Weight: 61.2356 kg

DRUGS (1)
  1. VITAMIN D [Suspect]
     Indication: VITAMIN D DECREASED
     Dosage: CAPSULE EVERY WEEK

REACTIONS (1)
  - POLLAKIURIA [None]
